FAERS Safety Report 7198473-7 (Version None)
Quarter: 2010Q4

REPORT INFORMATION
  Report Type: 
  Country: None (occurrence: None)
  Receive Date: 20101223
  Receipt Date: 20101223
  Transmission Date: 20110411
  Serious: Yes (Other)
  Sender: FDA-Public Use
  Company Number: None

PATIENT
  Age: 64 Year
  Sex: Female
  Weight: 61.2356 kg

DRUGS (2)
  1. CLINDAMYCIN HCL [Suspect]
     Indication: ENDODONTIC PROCEDURE
     Dosage: 2 CAPSULES EVERY 6  HOURS PO
     Route: 048
     Dates: start: 20100917, end: 20101015
  2. CLINDAMYCIN HCL [Suspect]
     Indication: ORAL SURGERY
     Dosage: 2 CAPSULES EVERY 6  HOURS PO
     Route: 048
     Dates: start: 20100917, end: 20101015

REACTIONS (1)
  - CLOSTRIDIUM DIFFICILE COLITIS [None]
